FAERS Safety Report 11571190 (Version 2)
Quarter: 2015Q4

REPORT INFORMATION
  Report Type: Spontaneous
  Country: US (occurrence: US)
  Receive Date: 20150916
  Receipt Date: 20151110
  Transmission Date: 20160304
  Serious: No
  Sender: FDA-Public Use
  Company Number: US-ELI_LILLY_AND_COMPANY-US200909004124

PATIENT
  Age: 74 Year
  Sex: Female

DRUGS (3)
  1. FORTEO [Suspect]
     Active Substance: TERIPARATIDE
     Dosage: 20 UG, QD
  2. FOSAMAX [Concomitant]
     Active Substance: ALENDRONATE SODIUM
  3. FORTEO [Suspect]
     Active Substance: TERIPARATIDE
     Indication: OSTEOPOROSIS
     Dosage: 20 UG, DAILY (1/D)
     Dates: start: 20090829

REACTIONS (7)
  - Injection site erythema [Unknown]
  - Injection site haemorrhage [Unknown]
  - Injection site swelling [Unknown]
  - Drug dose omission [Unknown]
  - Intentional product use issue [Recovered/Resolved]
  - Intentional device misuse [Unknown]
  - Injection site bruising [Unknown]

NARRATIVE: CASE EVENT DATE: 20090911
